FAERS Safety Report 21018874 (Version 1)
Quarter: 2022Q2

REPORT INFORMATION
  Report Type: Spontaneous
  Country: US (occurrence: None)
  Receive Date: 20220628
  Receipt Date: 20220628
  Transmission Date: 20220721
  Serious: Yes (Hospitalization)
  Sender: FDA-Public Use
  Company Number: None

PATIENT
  Age: 55 Year
  Sex: Male
  Weight: 110.25 kg

DRUGS (17)
  1. .DELTA.8-TETRAHYDROCANNABINOL\HERBALS [Suspect]
     Active Substance: .DELTA.8-TETRAHYDROCANNABINOL\HERBALS
     Indication: Anxiety
  2. DEVICE [Concomitant]
     Active Substance: DEVICE
  3. TEGRETOL [Concomitant]
     Active Substance: CARBAMAZEPINE
  4. LISINOPRIL [Concomitant]
     Active Substance: LISINOPRIL
  5. AMLODIPINE [Concomitant]
     Active Substance: AMLODIPINE BESYLATE
  6. METOPROLOL [Concomitant]
     Active Substance: METOPROLOL
  7. HYDROXYZINE [Concomitant]
     Active Substance: HYDROXYZINE HYDROCHLORIDE
  8. KLONOPIN [Concomitant]
     Active Substance: CLONAZEPAM
  9. ALBUTEROL [Concomitant]
     Active Substance: ALBUTEROL
  10. busperone [Concomitant]
  11. TRAZODONE [Concomitant]
     Active Substance: TRAZODONE HYDROCHLORIDE
  12. FLUVASTATIN [Concomitant]
     Active Substance: FLUVASTATIN SODIUM
  13. ALLOPURINOL [Concomitant]
     Active Substance: ALLOPURINOL
  14. CYCLOBENZAPRINE [Concomitant]
     Active Substance: CYCLOBENZAPRINE
  15. VITAMINS [Concomitant]
     Active Substance: VITAMINS
  16. VITAMIN D [Concomitant]
     Active Substance: VITAMIN D NOS
  17. ASPIRIN [Concomitant]
     Active Substance: ASPIRIN

REACTIONS (7)
  - Headache [None]
  - Tinnitus [None]
  - Cerebrovascular accident [None]
  - Hemiparesis [None]
  - Speech disorder [None]
  - Blood pressure increased [None]
  - Blood pressure decreased [None]

NARRATIVE: CASE EVENT DATE: 20220527
